FAERS Safety Report 4640204-6 (Version None)
Quarter: 2005Q2

REPORT INFORMATION
  Report Type: 
  Country: None (occurrence: None)
  Receive Date: 20050419
  Receipt Date: 20050412
  Transmission Date: 20051028
  Serious: Yes (Death)
  Sender: FDA-Public Use
  Company Number: 200510747BWH

PATIENT
  Age: 91 Year

DRUGS (1)
  1. TRASYLOL [Suspect]

REACTIONS (1)
  - CARDIAC PROCEDURE COMPLICATION [None]
